FAERS Safety Report 23307521 (Version 1)
Quarter: 2023Q4

REPORT INFORMATION
  Report Type: Spontaneous
  Country: EG (occurrence: EG)
  Receive Date: 20231218
  Receipt Date: 20231218
  Transmission Date: 20240110
  Serious: Yes (Other)
  Sender: FDA-Public Use
  Company Number: EG-002147023-NVSC2023EG266119

PATIENT
  Sex: Female
  Weight: 110 kg

DRUGS (5)
  1. ZOMETA [Suspect]
     Active Substance: ZOLEDRONIC ACID
     Indication: Breast cancer
     Dosage: UNK
     Route: 042
     Dates: start: 20221027, end: 20230511
  2. IBRANCE [Suspect]
     Active Substance: PALBOCICLIB
     Indication: Breast cancer
     Dosage: 125 MG (DAILY FOR 3 WEEKS)
     Route: 048
     Dates: start: 20220925
  3. FULVESTRANT [Concomitant]
     Active Substance: FULVESTRANT
     Indication: Breast cancer
     Dosage: UNK
     Route: 030
     Dates: start: 20220925
  4. CAL PREG [Concomitant]
     Indication: Breast cancer
     Dosage: UNK
     Route: 048
     Dates: start: 20220925
  5. CAL PREG [Concomitant]
     Indication: Metastases to bone

REACTIONS (1)
  - Osteonecrosis of jaw [Recovering/Resolving]

NARRATIVE: CASE EVENT DATE: 20230729
